FAERS Safety Report 7225503-6 (Version None)
Quarter: 2011Q1

REPORT INFORMATION
  Report Type: 
  Country: None (occurrence: None)
  Receive Date: 20110113
  Receipt Date: 20110107
  Transmission Date: 20110831
  Serious: Yes (Hospitalization)
  Sender: FDA-Public Use
  Company Number: FR-MERCK-1101FRA00048

PATIENT
  Age: 77 Year
  Sex: Female

DRUGS (8)
  1. ASPIRIN LYSINE [Concomitant]
     Route: 065
  2. ROSUVASTATIN CALCIUM [Concomitant]
     Indication: HYPERTRIGLYCERIDAEMIA
     Route: 065
  3. CALCIUM CARBONATE [Concomitant]
     Route: 065
  4. JANUVIA [Suspect]
     Indication: TYPE 2 DIABETES MELLITUS
     Route: 048
     Dates: start: 20100601, end: 20101001
  5. VALSARTAN [Concomitant]
     Indication: HYPERTENSION
     Route: 065
  6. BISOPROLOL [Concomitant]
     Route: 065
  7. HYDROXYZINE HYDROCHLORIDE [Concomitant]
     Route: 065
  8. METFORMIN [Concomitant]
     Route: 065

REACTIONS (1)
  - PEMPHIGOID [None]
